FAERS Safety Report 5239564-7 (Version None)
Quarter: 2007Q1

REPORT INFORMATION
  Report Type: 
  Country: None (occurrence: None)
  Receive Date: 20070216
  Receipt Date: 20070208
  Transmission Date: 20070707
  Serious: Yes (Other)
  Sender: FDA-Public Use
  Company Number: PL-GLAXOSMITHKLINE-B0458497A

PATIENT
  Sex: Female

DRUGS (1)
  1. NIQUITIN CQ 21MG [Suspect]
     Route: 062

REACTIONS (3)
  - FACE INJURY [None]
  - FALL [None]
  - SYNCOPE [None]
